FAERS Safety Report 4407640-4 (Version None)
Quarter: 2004Q3

REPORT INFORMATION
  Report Type: 
  Country: None (occurrence: None)
  Receive Date: 20040726
  Receipt Date: 20040721
  Transmission Date: 20050211
  Serious: Yes (Hospitalization)
  Sender: FDA-Public Use
  Company Number: US-MERCK-0407USA01794

PATIENT
  Age: 60 Year
  Sex: Female

DRUGS (2)
  1. [THERAPY UNSPECIFIED] [Concomitant]
     Route: 065
  2. ZOCOR [Suspect]
     Indication: BLOOD CHOLESTEROL INCREASED
     Route: 048
     Dates: start: 20030101, end: 20040720

REACTIONS (7)
  - ABNORMAL SENSATION IN EYE [None]
  - ADVERSE EVENT [None]
  - CEREBROVASCULAR ACCIDENT [None]
  - EYE PAIN [None]
  - MIOSIS [None]
  - PAIN IN EXTREMITY [None]
  - SENSORY DISTURBANCE [None]
